FAERS Safety Report 20046039 (Version 1)
Quarter: 2021Q4

REPORT INFORMATION
  Report Type: Spontaneous
  Country: US (occurrence: None)
  Receive Date: 20211108
  Receipt Date: 20211108
  Transmission Date: 20220303
  Serious: Yes (Hospitalization)
  Sender: FDA-Public Use
  Company Number: None

PATIENT
  Age: 31 Year
  Sex: Female
  Weight: 76.5 kg

DRUGS (6)
  1. PROVIGIL [Suspect]
     Active Substance: MODAFINIL
     Indication: Narcolepsy
     Dosage: OTHER QUANTITY : 1 CAPSULE(S);?FREQUENCY : TWICE A DAY;?
     Route: 048
  2. XYWAV [Suspect]
     Active Substance: CALCIUM OXYBATE\MAGNESIUM OXYBATE\POTASSIUM OXYBATE\SODIUM OXYBATE
  3. CELEXA [Suspect]
     Active Substance: CITALOPRAM HYDROBROMIDE
  4. VRAYLAR [Suspect]
     Active Substance: CARIPRAZINE
  5. MODAFINIL [Suspect]
     Active Substance: MODAFINIL
  6. L-METHYLFOLATE CA/ME-CBL [Concomitant]

REACTIONS (4)
  - Chest discomfort [None]
  - Pain [None]
  - Back pain [None]
  - Heart rate irregular [None]

NARRATIVE: CASE EVENT DATE: 20211107
